FAERS Safety Report 7608374-5 (Version None)
Quarter: 2011Q3

REPORT INFORMATION
  Report Type: 
  Country: None (occurrence: None)
  Receive Date: 20110714
  Receipt Date: 20110601
  Transmission Date: 20111222
  Serious: No
  Sender: FDA-Public Use
  Company Number: US-TYCO HEALTHCARE/MALLINCKRODT-T201101175

PATIENT
  Sex: Male

DRUGS (1)
  1. MORPHINE [Suspect]
     Dosage: UNK

REACTIONS (5)
  - MOOD ALTERED [None]
  - DRUG EFFECT DECREASED [None]
  - IRRITABILITY [None]
  - HYPERSOMNIA [None]
  - AGITATION [None]
